FAERS Safety Report 9932321 (Version 1)
Quarter: 2014Q1

REPORT INFORMATION
  Report Type: Report from Study
  Country: US (occurrence: US)
  Receive Date: 20140228
  Receipt Date: 20140228
  Transmission Date: 20141002
  Serious: No
  Sender: FDA-Public Use
  Company Number: US-ABBVIE-14P-163-1190143-00

PATIENT
  Sex: Male
  Weight: 108.96 kg

DRUGS (2)
  1. ANDROGEL [Suspect]
     Indication: PRODUCT USED FOR UNKNOWN INDICATION
     Route: 061
     Dates: start: 201310
  2. UNKNOWN MEDICATION [Concomitant]
     Indication: DEPRESSION

REACTIONS (2)
  - Abnormal dreams [Unknown]
  - Sleep talking [Unknown]
